FAERS Safety Report 20224143 (Version 3)
Quarter: 2022Q1

REPORT INFORMATION
  Report Type: Report from Study
  Country: IT (occurrence: IT)
  Receive Date: 20211223
  Receipt Date: 20220127
  Transmission Date: 20220423
  Serious: Yes (Other)
  Sender: FDA-Public Use
  Company Number: IT-BAYER-2021A272466

PATIENT
  Age: 78 Year
  Sex: Female
  Weight: 74 kg

DRUGS (14)
  1. COPANLISIB [Suspect]
     Active Substance: COPANLISIB
     Indication: Diffuse large B-cell lymphoma refractory
     Dosage: 30 MG, ON DAY 1, 8, 15 EVERY CYCLE
     Route: 042
     Dates: start: 20210524, end: 20211027
  2. COPANLISIB [Suspect]
     Active Substance: COPANLISIB
     Indication: Diffuse large B-cell lymphoma refractory
     Dosage: 30 MG, ON DAY 1, 8, 15 EVERY CYCLE
     Route: 042
     Dates: end: 20211202
  3. BENDAMUSTINE [Suspect]
     Active Substance: BENDAMUSTINE
     Indication: Diffuse large B-cell lymphoma refractory
     Dosage: 121 MG ON DAY 1, 2 EVERY CYCLE
     Route: 042
     Dates: start: 20210525, end: 20211021
  4. BENDAMUSTINE [Suspect]
     Active Substance: BENDAMUSTINE
     Indication: Diffuse large B-cell lymphoma refractory
     Dosage: 121 MG ON DAY 1, 2 EVERY CYCLE
     Route: 042
     Dates: end: 20211119
  5. RITUXIMAB [Suspect]
     Active Substance: RITUXIMAB
     Indication: Diffuse large B-cell lymphoma refractory
     Dosage: 649 MG ON DAY 1 EVERY CYCLE
     Route: 042
     Dates: start: 20210525, end: 20211020
  6. RITUXIMAB [Suspect]
     Active Substance: RITUXIMAB
     Indication: Diffuse large B-cell lymphoma refractory
     Dosage: 649 MG ON DAY 1 EVERY CYCLE
     Route: 042
     Dates: end: 20211118
  7. PERINDOPRIL [Concomitant]
     Active Substance: PERINDOPRIL
     Dosage: UNK
     Dates: start: 20210531
  8. FUROSEMIDE [Concomitant]
     Active Substance: FUROSEMIDE
     Dosage: UNK
     Dates: start: 20210126
  9. CHOLECALCIFEROL [Concomitant]
     Active Substance: CHOLECALCIFEROL
  10. LANSOPRAZOLE [Concomitant]
     Active Substance: LANSOPRAZOLE
     Dosage: UNK
     Dates: start: 20210524
  11. MEDROL [Concomitant]
     Active Substance: METHYLPREDNISOLONE
     Dosage: UNK
     Dates: start: 20210809
  12. ERYTHROPOIETIN [Concomitant]
     Active Substance: ERYTHROPOIETIN
     Dosage: UNK
     Dates: start: 20210726
  13. EDOXABAN TOSYLATE [Concomitant]
     Active Substance: EDOXABAN TOSYLATE
     Dosage: UNK
     Dates: start: 20210915
  14. ACYCLOVIR [Concomitant]
     Active Substance: ACYCLOVIR
     Dosage: UNK
     Dates: start: 20211118, end: 20211213

REACTIONS (2)
  - Cytomegalovirus infection reactivation [Recovered/Resolved]
  - Cytomegalovirus infection reactivation [Recovered/Resolved]

NARRATIVE: CASE EVENT DATE: 20211020
